FAERS Safety Report 10261267 (Version 2)
Quarter: 2014Q3

REPORT INFORMATION
  Report Type: Spontaneous
  Country: US (occurrence: None)
  Receive Date: 20140623
  Receipt Date: 20140911
  Transmission Date: 20150326
  Serious: Yes (Hospitalization)
  Sender: FDA-Public Use
  Company Number: US-000932

PATIENT
  Sex: Female
  Weight: 43.55 kg

DRUGS (15)
  1. CENTRUM SILVER [Concomitant]
     Active Substance: VITAMINS
  2. MAGNESIUM OXIDE. [Concomitant]
     Active Substance: MAGNESIUM OXIDE
  3. PANTOPRAZOLE [Concomitant]
     Active Substance: PANTOPRAZOLE SODIUM
  4. KLOR-CON [Concomitant]
     Active Substance: POTASSIUM CHLORIDE
  5. SOLUTIONS FOR  PARENTERAL NUTRITION [Concomitant]
     Active Substance: AMINO ACIDS\DEXTROSE\ELECTROLYTES NOS
  6. ASPIRIN. [Concomitant]
     Active Substance: ASPIRIN
  7. DILTIAZEM [Concomitant]
     Active Substance: DILTIAZEM
  8. METOPROLOL [Concomitant]
     Active Substance: METOPROLOL
  9. CELEXA [Concomitant]
     Active Substance: CITALOPRAM HYDROBROMIDE
  10. CALTRATE PLUS-D [Concomitant]
  11. GATTEX [Suspect]
     Active Substance: TEDUGLUTIDE\WATER
     Indication: SHORT-BOWEL SYNDROME
     Dosage: QD, STREN/VOLUM: 0.05 MG/KG/FREQU: ONCE A DAY SUBCUTANEOUS)
     Route: 058
     Dates: start: 201308, end: 20140605
  12. ANTIHYPERTENSIVES [Concomitant]
     Active Substance: UNSPECIFIED INGREDIENT
  13. LOSARTAN [Concomitant]
     Active Substance: LOSARTAN
  14. GAS RELIEF [Concomitant]
     Active Substance: DIMETHICONE
  15. PROBIOTIC [Concomitant]
     Active Substance: PROBIOTICS NOS

REACTIONS (7)
  - Peripheral swelling [None]
  - Stoma site haemorrhage [None]
  - Stoma site irritation [None]
  - Herpes zoster [None]
  - Stoma site erythema [None]
  - Stoma site pain [None]
  - Blood glucose increased [None]
